FAERS Safety Report 8551838-0 (Version None)
Quarter: 2012Q3

REPORT INFORMATION
  Report Type: 
  Country: None (occurrence: None)
  Receive Date: 20120730
  Receipt Date: 20120621
  Transmission Date: 20120928
  Serious: Yes (Other)
  Sender: FDA-Public Use
  Company Number: KR-BAYER-2012-060615

PATIENT
  Sex: Female

DRUGS (2)
  1. MIRENA [Suspect]
  2. YASMIN [Suspect]
     Indication: VAGINAL HAEMORRHAGE
     Dosage: UNK

REACTIONS (3)
  - GENITAL HAEMORRHAGE [None]
  - DEVICE DISLOCATION [None]
  - VISUAL IMPAIRMENT [None]
